FAERS Safety Report 9988618 (Version 2)
Quarter: 2014Q1

REPORT INFORMATION
  Report Type: Report from Study
  Country: JP (occurrence: JP)
  Receive Date: 20140310
  Receipt Date: 20140310
  Transmission Date: 20141002
  Serious: Yes (Life-Threatening, Hospitalization, Other)
  Sender: FDA-Public Use
  Company Number: JP-BRISTOL-MYERS SQUIBB COMPANY-20051975

PATIENT
  Age: 66 Year
  Sex: Male
  Weight: 36 kg

DRUGS (12)
  1. SPRYCEL [Suspect]
     Indication: ACUTE LYMPHOCYTIC LEUKAEMIA
     Dosage: 10OCT-12OCT13?25OCT-04NOV13?05NOV13-15NOV13?01DEC13-4DEC13?05DEC13-06DEC13?07DEC13-10DEC13
     Route: 048
     Dates: start: 20131010, end: 20131211
  2. PREDNISOLONE [Concomitant]
     Indication: ACUTE LYMPHOCYTIC LEUKAEMIA
     Dosage: 1 DF: 5-45MG
     Route: 048
     Dates: start: 20131010, end: 20131024
  3. DALTEPARIN [Concomitant]
     Route: 042
     Dates: start: 20131009, end: 20131011
  4. SALOBEL [Concomitant]
     Route: 048
     Dates: start: 20131007, end: 20131031
  5. POTASSIUM CITRATE [Concomitant]
     Dosage: 1 DF: 6 TABS
     Route: 048
     Dates: start: 20131007, end: 20131025
  6. CIPROXAN [Concomitant]
     Indication: PROPHYLAXIS
     Route: 048
     Dates: start: 20131007, end: 20131115
  7. DIFLUCAN [Concomitant]
     Indication: PROPHYLAXIS
     Dosage: CAPS
     Route: 048
     Dates: start: 20131007, end: 20131115
  8. BARACLUDE [Concomitant]
     Indication: PROPHYLAXIS
     Route: 048
     Dates: start: 20131007, end: 20131115
  9. ZOPICLONE [Concomitant]
     Route: 048
     Dates: start: 20131007, end: 20131024
  10. TAKEPRON [Concomitant]
     Route: 048
     Dates: start: 20131011, end: 20131025
  11. REBAMIPIDE [Concomitant]
     Route: 048
     Dates: start: 20131011, end: 20131107
  12. ULCERLMIN [Concomitant]
     Route: 048
     Dates: start: 20131013, end: 20131031

REACTIONS (8)
  - Blood creatinine increased [Recovered/Resolved]
  - White blood cell count decreased [Recovered/Resolved]
  - Neutrophil count decreased [Recovered/Resolved]
  - Platelet count decreased [Recovered/Resolved]
  - Anaemia [Recovered/Resolved]
  - Dermatitis exfoliative [Recovered/Resolved]
  - Gastrointestinal haemorrhage [Recovered/Resolved]
  - Renal failure acute [Recovered/Resolved]
